FAERS Safety Report 10089713 (Version 2)
Quarter: 2014Q4

REPORT INFORMATION
  Report Type: Spontaneous
  Country: GB (occurrence: GB)
  Receive Date: 20140421
  Receipt Date: 20141006
  Transmission Date: 20150528
  Serious: Yes (Life-Threatening)
  Sender: FDA-Public Use
  Company Number: GB-TEVA-475775ISR

PATIENT
  Age: 77 Year
  Sex: Male
  Weight: 116 kg

DRUGS (7)
  1. TRIMETHOPRIM. [Suspect]
     Active Substance: TRIMETHOPRIM
     Indication: PROSTATITIS
     Dosage: 400 MILLIGRAM DAILY;
     Route: 048
     Dates: start: 20140321, end: 20140402
  2. GLUCOPHAGE SR [Concomitant]
  3. LISINOPRIL. [Concomitant]
     Active Substance: LISINOPRIL
     Dates: end: 2014
  4. NITRAZEPAM [Concomitant]
     Active Substance: NITRAZEPAM
  5. PAROXETINE [Concomitant]
     Active Substance: PAROXETINE\PAROXETINE HYDROCHLORIDE
  6. SAXAGLIPTIN [Concomitant]
     Active Substance: SAXAGLIPTIN
  7. GLICLAZIDE [Concomitant]
     Active Substance: GLICLAZIDE

REACTIONS (3)
  - Acute kidney injury [Recovered/Resolved with Sequelae]
  - Hyperkalaemia [Not Recovered/Not Resolved]
  - Gastrointestinal disorder [Unknown]

NARRATIVE: CASE EVENT DATE: 20140402
